FAERS Safety Report 7277499-9 (Version None)
Quarter: 2011Q1

REPORT INFORMATION
  Report Type: 
  Country: None (occurrence: None)
  Receive Date: 20110207
  Receipt Date: 20110125
  Transmission Date: 20110831
  Serious: Yes (Other)
  Sender: FDA-Public Use
  Company Number: US-ELI_LILLY_AND_COMPANY-US201011005785

PATIENT
  Age: 77 Year
  Sex: Female
  Weight: 59.864 kg

DRUGS (1)
  1. FORTEO [Suspect]
     Indication: OSTEOPOROSIS
     Dosage: 20 UG, DAILY (1/D)
     Route: 058
     Dates: start: 20100701

REACTIONS (4)
  - CAROTID ARTERY STENOSIS [None]
  - DIZZINESS [None]
  - VASCULAR OCCLUSION [None]
  - BLOOD PRESSURE ABNORMAL [None]
